FAERS Safety Report 9477992 (Version 1)
Quarter: 2013Q3

REPORT INFORMATION
  Report Type: Spontaneous
  Country: US (occurrence: US)
  Receive Date: 20130827
  Receipt Date: 20130827
  Transmission Date: 20140515
  Serious: Yes (Other)
  Sender: FDA-Public Use
  Company Number: PHHY2013US091008

PATIENT
  Age: 76 Year
  Sex: Female

DRUGS (3)
  1. IMATINIB [Suspect]
     Indication: CHRONIC MYELOID LEUKAEMIA
     Dosage: UNK UKN, UNK
     Dates: start: 2005
  2. IMATINIB [Suspect]
     Dosage: UNK UKN, UNK
     Dates: start: 2009
  3. DASATINIB [Suspect]
     Dosage: UNK UKN, UNK
     Dates: start: 2008

REACTIONS (3)
  - Extranodal marginal zone B-cell lymphoma (MALT type) [Recovering/Resolving]
  - Second primary malignancy [Recovering/Resolving]
  - Visual impairment [Unknown]
